FAERS Safety Report 14416272 (Version 5)
Quarter: 2018Q1

REPORT INFORMATION
  Report Type: Report from Study
  Country: None (occurrence: US)
  Receive Date: 20180122
  Receipt Date: 20180326
  Transmission Date: 20180509
  Serious: Yes (Hospitalization, Other)
  Sender: FDA-Public Use
  Company Number: US-ABBVIE-17K-163-1903545-00

PATIENT
  Age: 62 Year
  Sex: Female

DRUGS (7)
  1. HUMIRA [Suspect]
     Active Substance: ADALIMUMAB
     Route: 058
     Dates: start: 20170404, end: 2018
  2. HUMIRA [Suspect]
     Active Substance: ADALIMUMAB
     Dosage: DAY 15
     Route: 058
     Dates: start: 20170321, end: 20170321
  3. HUMIRA [Suspect]
     Active Substance: ADALIMUMAB
     Indication: CROHN^S DISEASE
     Dosage: DAY 1
     Route: 058
     Dates: start: 20170307, end: 20170307
  4. VITAMIN B12 [Concomitant]
     Active Substance: CYANOCOBALAMIN
     Indication: PRODUCT USED FOR UNKNOWN INDICATION
  5. VITAMIN D [Concomitant]
     Active Substance: CHOLECALCIFEROL
     Indication: PRODUCT USED FOR UNKNOWN INDICATION
  6. PROBIOTICS [Concomitant]
     Active Substance: PROBIOTICS NOS
     Indication: GASTROINTESTINAL DISORDER
  7. PANTOPRAZOLE [Concomitant]
     Active Substance: PANTOPRAZOLE
     Indication: PRODUCT USED FOR UNKNOWN INDICATION

REACTIONS (37)
  - Visual impairment [Not Recovered/Not Resolved]
  - Immunodeficiency [Unknown]
  - Pruritus [Unknown]
  - Constipation [Recovering/Resolving]
  - Palpitations [Unknown]
  - Headache [Recovered/Resolved]
  - Rectal haemorrhage [Recovered/Resolved]
  - Blood cholesterol increased [Unknown]
  - Rash pruritic [Unknown]
  - Blood pressure fluctuation [Unknown]
  - Decreased appetite [Not Recovered/Not Resolved]
  - Dry eye [Recovering/Resolving]
  - Hypertension [Recovering/Resolving]
  - Erythema [Unknown]
  - Blindness transient [Not Recovered/Not Resolved]
  - Insomnia [Not Recovered/Not Resolved]
  - Dermatitis contact [Unknown]
  - Diarrhoea [Recovering/Resolving]
  - Rash pustular [Unknown]
  - Rash papular [Recovering/Resolving]
  - Dizziness [Unknown]
  - Rash papular [Unknown]
  - Vomiting [Not Recovered/Not Resolved]
  - Rash pruritic [Recovering/Resolving]
  - Photosensitivity reaction [Recovering/Resolving]
  - Weight increased [Unknown]
  - Scab [Unknown]
  - Migraine [Recovering/Resolving]
  - Injection site bruising [Unknown]
  - Nasopharyngitis [Recovering/Resolving]
  - Chills [Unknown]
  - Arthropod bite [Unknown]
  - Depression [Unknown]
  - Pruritus [Unknown]
  - Panic attack [Unknown]
  - Abdominal pain [Recovered/Resolved]
  - Nausea [Not Recovered/Not Resolved]

NARRATIVE: CASE EVENT DATE: 2017
